FAERS Safety Report 18364330 (Version 13)
Quarter: 2025Q1

REPORT INFORMATION
  Report Type: Report from Study
  Country: DE (occurrence: DE)
  Receive Date: 20201009
  Receipt Date: 20250206
  Transmission Date: 20250408
  Serious: Yes (Hospitalization)
  Sender: BIOGEN
  Company Number: DE-BIOGEN-2020BI00931376

PATIENT
  Sex: Female

DRUGS (1)
  1. PLEGRIDY [Suspect]
     Active Substance: PEGINTERFERON BETA-1A
     Indication: Multiple sclerosis
     Route: 050
     Dates: start: 20160323, end: 20200712

REACTIONS (4)
  - Guillain-Barre syndrome [Not Recovered/Not Resolved]
  - Pneumonia [Recovered/Resolved]
  - Multiple sclerosis [Not Recovered/Not Resolved]
  - Liver function test increased [Recovered/Resolved]

NARRATIVE: CASE EVENT DATE: 20200101
